FAERS Safety Report 4569527-6 (Version None)
Quarter: 2005Q1

REPORT INFORMATION
  Report Type: 
  Country: None (occurrence: None)
  Receive Date: 20050201
  Receipt Date: 20050119
  Transmission Date: 20050727
  Serious: Yes (Other)
  Sender: FDA-Public Use
  Company Number: 2005014112

PATIENT
  Age: 76 Year
  Sex: Male

DRUGS (5)
  1. SULPERAZON (SULBACTAM, CEFOPERAZONE) [Suspect]
     Indication: PNEUMONIA
     Dosage: 3 GRAM, INTRAVENOUS
     Route: 042
     Dates: start: 20041223, end: 20050106
  2. PN TWIN (AMINO ACIDS NOS, CARBOHYDRATES NOS, ELECTROLYTES NOS) [Suspect]
     Indication: ILL-DEFINED DISORDER
     Dosage: INTRAVENOUS
     Route: 042
  3. MEROPENEM (MEROPENEM) [Concomitant]
  4. ERYTHROMYCIN [Concomitant]
  5. VANCOMYCIN HYDROCHLORIDE (VANCOMYCIN HYDROCHLORIDE) [Concomitant]

REACTIONS (3)
  - ALANINE AMINOTRANSFERASE INCREASED [None]
  - ASPARTATE AMINOTRANSFERASE INCREASED [None]
  - LIVER DISORDER [None]
